FAERS Safety Report 11090612 (Version 1)
Quarter: 2015Q2

REPORT INFORMATION
  Report Type: Spontaneous
  Country: US (occurrence: None)
  Receive Date: 20150504
  Receipt Date: 20150504
  Transmission Date: 20150821
  Serious: No
  Sender: FDA-Public Use
  Company Number: None

PATIENT
  Age: 57 Year
  Sex: Female
  Weight: 136.08 kg

DRUGS (13)
  1. LISINOPRIL. [Concomitant]
     Active Substance: LISINOPRIL
  2. ZOLPIDEM [Concomitant]
     Active Substance: ZOLPIDEM\ZOLPIDEM TARTRATE
  3. FLECAINIDE [Concomitant]
     Active Substance: FLECAINIDE
  4. CELEBREX [Concomitant]
     Active Substance: CELECOXIB
  5. AZATHIOPRINE. [Concomitant]
     Active Substance: AZATHIOPRINE
  6. LYRICA [Suspect]
     Active Substance: PREGABALIN
     Indication: MUSCULOSKELETAL PAIN
     Route: 048
     Dates: start: 20150421, end: 20150501
  7. MONTELUKAST [Concomitant]
     Active Substance: MONTELUKAST SODIUM
  8. METFORMIN [Concomitant]
     Active Substance: METFORMIN HYDROCHLORIDE
  9. NEXIUM [Concomitant]
     Active Substance: ESOMEPRAZOLE MAGNESIUM
  10. DILTIAZEM [Concomitant]
     Active Substance: DILTIAZEM
  11. IRON [Concomitant]
     Active Substance: IRON
  12. XARELTO [Concomitant]
     Active Substance: RIVAROXABAN
  13. GLIMEPERIDE [Concomitant]
     Active Substance: GLIMEPIRIDE

REACTIONS (1)
  - Thirst [None]
